FAERS Safety Report 9646679 (Version 1)
Quarter: 2013Q4

REPORT INFORMATION
  Report Type: Report from Study
  Country: CO (occurrence: CO)
  Receive Date: 20131027
  Receipt Date: 20131027
  Transmission Date: 20140711
  Serious: Yes (Hospitalization)
  Sender: FDA-Public Use
  Company Number: CO-US-EMD SERONO, INC.-7245772

PATIENT
  Sex: Female
  Weight: 25 kg

DRUGS (1)
  1. SAIZEN [Suspect]
     Indication: BODY HEIGHT BELOW NORMAL
     Route: 058
     Dates: start: 20121126, end: 20121218

REACTIONS (1)
  - Brain teratoma [Unknown]
